FAERS Safety Report 10594295 (Version 1)
Quarter: 2014Q4

REPORT INFORMATION
  Report Type: Spontaneous
  Country: ES (occurrence: ES)
  Receive Date: 20141119
  Receipt Date: 20141119
  Transmission Date: 20150529
  Serious: Yes (Hospitalization)
  Sender: FDA-Public Use
  Company Number: ES-PFIZER INC-2014319247

PATIENT
  Age: 61 Year
  Sex: Male

DRUGS (9)
  1. OMNIC OCAS [Concomitant]
     Active Substance: TAMSULOSIN HYDROCHLORIDE
     Dosage: 0.4 MG, 1X/DAY
     Route: 048
  2. NEURONTIN [Suspect]
     Active Substance: GABAPENTIN
     Dosage: ^600 MG A TOTAL OF THREE  AT A DOSE OF 2700 MG
     Route: 048
     Dates: start: 20140127, end: 20140204
  3. RIVOTRIL [Suspect]
     Active Substance: CLONAZEPAM
     Dosage: .5 MG A TOTAL OF THREE TIMES, AT A DOSE OF 3 MG
     Route: 048
     Dates: start: 20140127, end: 20140204
  4. FOLI DOCE [Concomitant]
     Route: 048
  5. ALLOPURINOL. [Concomitant]
     Active Substance: ALLOPURINOL
     Dosage: 100 MG, 1X/DAY
     Route: 048
  6. FERPLEX [Concomitant]
     Route: 048
  7. TROMALYT [Concomitant]
     Active Substance: ASPIRIN
     Route: 048
  8. LIORESAL [Suspect]
     Active Substance: BACLOFEN
     Dosage: A TOTAL OF THREE TIMES, AT A DOSE OF 50 MG
     Route: 048
     Dates: start: 20140127, end: 20140204
  9. SEROPRAM [Concomitant]
     Active Substance: CITALOPRAM HYDROBROMIDE
     Route: 048

REACTIONS (1)
  - Metabolic encephalopathy [Recovered/Resolved]

NARRATIVE: CASE EVENT DATE: 20140128
